FAERS Safety Report 15417783 (Version 1)
Quarter: 2018Q3

REPORT INFORMATION
  Report Type: Spontaneous
  Country: US (occurrence: US)
  Receive Date: 20180924
  Receipt Date: 20180924
  Transmission Date: 20181010
  Serious: No
  Sender: FDA-Public Use
  Company Number: US-009507513-1809USA007663

PATIENT
  Age: 49 Year
  Sex: Male

DRUGS (1)
  1. STEGLATRO [Suspect]
     Active Substance: ERTUGLIFLOZIN PIDOLATE
     Indication: DIABETES MELLITUS
     Dosage: 5 MG, QD FOR THREE DAYS
     Route: 048
     Dates: start: 20180517, end: 20180520

REACTIONS (2)
  - Nocturia [Recovered/Resolved]
  - Genital discomfort [Recovered/Resolved]

NARRATIVE: CASE EVENT DATE: 201805
